FAERS Safety Report 7389337-4 (Version None)
Quarter: 2011Q2

REPORT INFORMATION
  Report Type: 
  Country: None (occurrence: None)
  Receive Date: 20110401
  Receipt Date: 20110328
  Transmission Date: 20111010
  Serious: Yes (Other)
  Sender: FDA-Public Use
  Company Number: A0920308A

PATIENT
  Age: 76 Year
  Sex: Female

DRUGS (17)
  1. FOSAMAX [Concomitant]
  2. NEXIUM [Concomitant]
  3. DILTIAZEM [Concomitant]
  4. WARFARIN [Concomitant]
  5. VITAMIN D [Concomitant]
  6. PERCOCET [Concomitant]
  7. ATROVENT [Concomitant]
  8. SPIRIVA [Concomitant]
  9. LEVOTHYROXINE SODIUM [Concomitant]
  10. MECLIZINE [Concomitant]
  11. XANAX [Concomitant]
  12. NIASPAN [Concomitant]
  13. ADVAIR DISKUS 100/50 [Suspect]
     Indication: CHRONIC OBSTRUCTIVE PULMONARY DISEASE
     Dosage: 1PUFF TWICE PER DAY
     Route: 055
     Dates: start: 20100801, end: 20101101
  14. FLEXERIL [Concomitant]
  15. VITAMIN B-12 [Concomitant]
  16. ISORDIL [Concomitant]
  17. ZOCOR [Concomitant]

REACTIONS (5)
  - MYALGIA [None]
  - BONE PAIN [None]
  - BEDRIDDEN [None]
  - SYNCOPE [None]
  - OEDEMA PERIPHERAL [None]
